FAERS Safety Report 10597521 (Version 1)
Quarter: 2014Q4

REPORT INFORMATION
  Report Type: Spontaneous
  Country: GB (occurrence: None)
  Receive Date: 20141119
  Receipt Date: 20141119
  Transmission Date: 20150529
  Serious: Yes (Other)
  Sender: FDA-Public Use
  Company Number: FK201405218

PATIENT
  Age: 16 Year
  Sex: Female

DRUGS (2)
  1. MERCAPTOPURINE (MERCAPTOPURINE) (MERCAPTOPURINE) [Suspect]
     Active Substance: MERCAPTOPURINE
     Indication: CHEMOTHERAPY
     Route: 048
     Dates: end: 20140112
  2. METHOTREXATE [Suspect]
     Active Substance: METHOTREXATE
     Indication: CHEMOTHERAPY
     Route: 048
     Dates: end: 20140112

REACTIONS (10)
  - Toxicity to various agents [None]
  - Drug prescribing error [None]
  - Respiratory tract haemorrhage [None]
  - Neutrophil count decreased [None]
  - Rash [None]
  - Stevens-Johnson syndrome [None]
  - Cardiac arrest [None]
  - Blister [None]
  - Mucosal inflammation [None]
  - Pancytopenia [None]
